FAERS Safety Report 9562135 (Version 2)
Quarter: 2013Q4

REPORT INFORMATION
  Report Type: Report from Study
  Country: US (occurrence: US)
  Receive Date: 20130927
  Receipt Date: 20131112
  Transmission Date: 20140711
  Serious: Yes (Other)
  Sender: FDA-Public Use
  Company Number: US-ROCHE-1280524

PATIENT
  Age: 56 Year
  Sex: Female

DRUGS (4)
  1. TOCILIZUMAB [Suspect]
     Indication: RHEUMATOID ARTHRITIS
     Route: 042
  2. TOCILIZUMAB [Suspect]
     Route: 042
     Dates: start: 20130821
  3. TOCILIZUMAB [Suspect]
     Route: 042
     Dates: start: 20130904
  4. TOCILIZUMAB [Suspect]
     Dosage: 400 MG VIAL
     Route: 065

REACTIONS (3)
  - Palpitations [Unknown]
  - Feeling abnormal [Unknown]
  - Dyspnoea [Unknown]
